FAERS Safety Report 7401141-7 (Version None)
Quarter: 2011Q1

REPORT INFORMATION
  Report Type: 
  Country: None (occurrence: None)
  Receive Date: 20110329
  Receipt Date: 20110318
  Transmission Date: 20110831
  Serious: Yes (Life-Threatening, Hospitalization, Other)
  Sender: FDA-Public Use
  Company Number: 20110219

PATIENT
  Age: 80 Year
  Sex: Male

DRUGS (6)
  1. FERINJECT [Suspect]
     Dosage: INTRAVNEOUS
     Route: 042
     Dates: start: 20110219, end: 20110219
  2. DIGOXIN [Concomitant]
  3. BUMETANIDE [Concomitant]
  4. VENOFER [Suspect]
     Dosage: INTRAVENOUS
     Route: 042
     Dates: start: 20110219, end: 20110219
  5. CELIPROLOL [Concomitant]
  6. LOSARTAN POTASSIUM [Concomitant]

REACTIONS (5)
  - DYSPNOEA [None]
  - TROPONIN INCREASED [None]
  - ELECTROCARDIOGRAM ABNORMAL [None]
  - ABDOMINAL PAIN [None]
  - CHILLS [None]
